FAERS Safety Report 4819480-2 (Version None)
Quarter: 2005Q4

REPORT INFORMATION
  Report Type: 
  Country: None (occurrence: None)
  Receive Date: 20051031
  Receipt Date: 20050705
  Transmission Date: 20060501
  Serious: No
  Sender: FDA-Public Use
  Company Number: 2005PV000266

PATIENT
  Age: 58 Year
  Sex: Female
  Weight: 99.7913 kg

DRUGS (9)
  1. SYMLIN [Suspect]
     Indication: DIABETES MELLITUS NON-INSULIN-DEPENDENT
     Dosage: 60 UG; SC
     Route: 058
     Dates: start: 20050630
  2. BENICAR [Concomitant]
  3. ZESTRIL [Concomitant]
  4. COREG [Concomitant]
  5. ZETIA [Concomitant]
  6. LIPITOR [Concomitant]
  7. HYDROCHLOROTHIAZIDE [Concomitant]
  8. NOVOLOG [Concomitant]
  9. LANTUS [Concomitant]

REACTIONS (1)
  - BLOOD GLUCOSE INCREASED [None]
